FAERS Safety Report 25903392 (Version 1)
Quarter: 2025Q4

REPORT INFORMATION
  Report Type: Spontaneous
  Country: US (occurrence: US)
  Receive Date: 20251009
  Receipt Date: 20251009
  Transmission Date: 20260117
  Serious: No
  Sender: CB FLEET
  Company Number: US-PRESTIGE-202507-US-002238

PATIENT
  Sex: Female

DRUGS (1)
  1. MONISTAT 3 [Suspect]
     Active Substance: MICONAZOLE NITRATE
     Indication: Pruritus
     Dosage: USED 2 DOSES
     Route: 067

REACTIONS (4)
  - Product use in unapproved indication [None]
  - Vulvovaginal pruritus [Unknown]
  - Abdominal pain lower [Unknown]
  - Vaginal haemorrhage [Unknown]
